FAERS Safety Report 4635221-6 (Version None)
Quarter: 2005Q2

REPORT INFORMATION
  Report Type: 
  Country: None (occurrence: None)
  Receive Date: 20050411
  Receipt Date: 20050331
  Transmission Date: 20051028
  Serious: Yes (Hospitalization)
  Sender: FDA-Public Use
  Company Number: 2005UW05137

PATIENT
  Age: 58 Year
  Sex: Male

DRUGS (1)
  1. TAMOXIFEN CITRATE [Suspect]

REACTIONS (1)
  - DIARRHOEA [None]
